FAERS Safety Report 17519791 (Version 1)
Quarter: 2020Q1

REPORT INFORMATION
  Report Type: Spontaneous
  Country: FR (occurrence: FR)
  Receive Date: 20200310
  Receipt Date: 20200310
  Transmission Date: 20200409
  Serious: Yes (Hospitalization, Other)
  Sender: FDA-Public Use
  Company Number: FR-AUROBINDO-AUR-APL-2020-011531

PATIENT
  Age: 42 Year
  Sex: Male
  Weight: 87 kg

DRUGS (1)
  1. AMOXICILLIN. [Suspect]
     Active Substance: AMOXICILLIN
     Indication: PNEUMONIA BACTERIAL
     Dosage: 3 GRAM
     Route: 048
     Dates: start: 20200211, end: 20200215

REACTIONS (2)
  - Neutropenia [Recovering/Resolving]
  - Mononucleosis syndrome [Recovering/Resolving]

NARRATIVE: CASE EVENT DATE: 20200213
